FAERS Safety Report 14988845 (Version 2)
Quarter: 2018Q2

REPORT INFORMATION
  Report Type: Spontaneous
  Country: US (occurrence: US)
  Receive Date: 20180608
  Receipt Date: 20180613
  Transmission Date: 20180711
  Serious: No
  Sender: FDA-Public Use
  Company Number: US-PFIZER INC-2018233182

PATIENT
  Age: 55 Year
  Sex: Female
  Weight: 66.67 kg

DRUGS (3)
  1. PREMARIN [Suspect]
     Active Substance: ESTROGENS, CONJUGATED
     Indication: VULVOVAGINAL DRYNESS
     Dosage: UNK, (1.06OZ; USE FOR 2 WEEKS STRAIGHT)
     Route: 067
     Dates: start: 2014
  2. SYNTHROID [Concomitant]
     Active Substance: LEVOTHYROXINE SODIUM
     Dosage: UNK
  3. PREMARIN [Suspect]
     Active Substance: ESTROGENS, CONJUGATED
     Dosage: UNK UNK, 2X/WEEK, (0.5 OR 0.05 )
     Route: 067

REACTIONS (7)
  - Vulvovaginal pain [Unknown]
  - Pudendal canal syndrome [Unknown]
  - Constipation [Unknown]
  - Application site pain [Unknown]
  - Levator syndrome [Unknown]
  - Vulvovaginal burning sensation [Unknown]
  - Expired product administered [Unknown]

NARRATIVE: CASE EVENT DATE: 2014
